FAERS Safety Report 17029471 (Version 2)
Quarter: 2021Q1

REPORT INFORMATION
  Report Type: Spontaneous
  Country: US (occurrence: US)
  Receive Date: 20191114
  Receipt Date: 20210206
  Transmission Date: 20210419
  Serious: Yes (Disabling)
  Sender: FDA-Public Use
  Company Number: US-TEVA-2019-US-1136439

PATIENT
  Age: 47 Year
  Sex: Female
  Weight: 79.37 kg

DRUGS (6)
  1. PARAPLATIN [Concomitant]
     Active Substance: CARBOPLATIN
     Indication: BREAST CANCER
     Dates: start: 20130524, end: 20130807
  2. DOCETAXEL SANOFI AND WINTHROP US [Suspect]
     Active Substance: DOCETAXEL
     Indication: BREAST CANCER
     Dosage: FREQUENCY: EVERY 3 WEEKS AND NO OF CYCLES : 04
     Route: 065
     Dates: start: 20130524, end: 20130807
  3. NAPROXEN. [Concomitant]
     Active Substance: NAPROXEN
     Dosage: ONGOING
     Dates: start: 2010
  4. TAXOTERE [Suspect]
     Active Substance: DOCETAXEL
     Indication: BREAST CANCER
     Dosage: FREQUENCY: EVERY 3 WEEKS AND NO OF CYCLES : 04
     Route: 065
     Dates: start: 20130524, end: 20130807
  5. HERCEPTIN [Concomitant]
     Active Substance: TRASTUZUMAB
     Indication: BREAST CANCER
     Dates: start: 20130524, end: 20130807
  6. IBUPROFEN. [Concomitant]
     Active Substance: IBUPROFEN
     Dates: start: 2010, end: 2016

REACTIONS (3)
  - Hair texture abnormal [Not Recovered/Not Resolved]
  - Alopecia areata [Not Recovered/Not Resolved]
  - Hair colour changes [Not Recovered/Not Resolved]

NARRATIVE: CASE EVENT DATE: 20130624
